FAERS Safety Report 13083360 (Version 1)
Quarter: 2017Q1

REPORT INFORMATION
  Report Type: Spontaneous
  Country: GB (occurrence: GB)
  Receive Date: 20170104
  Receipt Date: 20170104
  Transmission Date: 20170428
  Serious: Yes (Other)
  Sender: FDA-Public Use
  Company Number: GB-SUN PHARMACEUTICAL INDUSTRIES LTD-2016RR-130580

PATIENT
  Age: 44 Year
  Sex: Female
  Weight: 61.68 kg

DRUGS (1)
  1. ACICLOVIR [Suspect]
     Active Substance: ACYCLOVIR
     Indication: ORAL HERPES
     Dosage: 200 MG, 5 TIMES PER DAY
     Route: 048
     Dates: start: 20161208

REACTIONS (4)
  - Sleep disorder [Not Recovered/Not Resolved]
  - Nightmare [Not Recovered/Not Resolved]
  - Malaise [Not Recovered/Not Resolved]
  - Hangover [Not Recovered/Not Resolved]

NARRATIVE: CASE EVENT DATE: 20161208
